FAERS Safety Report 9949487 (Version 1)
Quarter: 2014Q1

REPORT INFORMATION
  Report Type: Spontaneous
  Country: IT (occurrence: IT)
  Receive Date: 20140304
  Receipt Date: 20140304
  Transmission Date: 20141002
  Serious: Yes (Death)
  Sender: FDA-Public Use
  Company Number: IT-ROCHE-1355032

PATIENT
  Age: 62 Year
  Sex: Male
  Weight: 84 kg

DRUGS (2)
  1. XELODA [Suspect]
     Indication: PRODUCT USED FOR UNKNOWN INDICATION
     Dosage: 7 TABLETS OF 500 MG PER DAY DIVIDED INTO 3 AFTER BREAKFAST AND 4 CPR AFTER DINNER
     Route: 048
     Dates: start: 20131205, end: 20131218
  2. OXALIPLATINO [Suspect]
     Indication: PRODUCT USED FOR UNKNOWN INDICATION
     Dosage: 130 MG /M REDUCED BY 20 %
     Route: 042
     Dates: start: 20131205, end: 20131205

REACTIONS (3)
  - Febrile neutropenia [Fatal]
  - Diarrhoea [Unknown]
  - Erythema [Unknown]
